FAERS Safety Report 12924613 (Version 1)
Quarter: 2016Q4

REPORT INFORMATION
  Report Type: Spontaneous
  Country: US (occurrence: US)
  Receive Date: 20161108
  Receipt Date: 20161108
  Transmission Date: 20170207
  Serious: Yes (Hospitalization)
  Sender: FDA-Public Use
  Company Number: None

PATIENT
  Age: 41 Year
  Sex: Female
  Weight: 96.75 kg

DRUGS (13)
  1. ZOMIG [Concomitant]
     Active Substance: ZOLMITRIPTAN
  2. ZOFRAN [Concomitant]
     Active Substance: ONDANSETRON HYDROCHLORIDE
  3. TOVIAZ [Suspect]
     Active Substance: FESOTERODINE FUMARATE
     Indication: HYPERTONIC BLADDER
     Dosage: ?          QUANTITY:1 CAPSULE(S);?
     Route: 048
  4. EPIPEN [Concomitant]
     Active Substance: EPINEPHRINE
  5. PRISTIQ EXTENDED-RELEASE [Concomitant]
     Active Substance: DESVENLAFAXINE SUCCINATE
  6. PHEEGRAN [Concomitant]
  7. PRILOSEC [Concomitant]
     Active Substance: OMEPRAZOLE MAGNESIUM
  8. OTC  VITAMINS [Concomitant]
  9. ZYRTEC [Concomitant]
     Active Substance: CETIRIZINE HYDROCHLORIDE
  10. ZYRTEC [Concomitant]
     Active Substance: CETIRIZINE HYDROCHLORIDE
  11. PROBIOTICS [Concomitant]
     Active Substance: PROBIOTICS NOS
  12. SEROQUEL [Concomitant]
     Active Substance: QUETIAPINE FUMARATE
  13. CALAN [Concomitant]
     Active Substance: VERAPAMIL HYDROCHLORIDE

REACTIONS (4)
  - Constipation [None]
  - Pain [None]
  - Discomfort [None]
  - X-ray gastrointestinal tract abnormal [None]

NARRATIVE: CASE EVENT DATE: 20161102
